FAERS Safety Report 10071982 (Version 1)
Quarter: 2014Q1

REPORT INFORMATION
  Report Type: Spontaneous
  Country: US (occurrence: None)
  Receive Date: 20140313
  Receipt Date: 20140313
  Transmission Date: 20141002
  Serious: Yes (Other)
  Sender: FDA-Public Use
  Company Number: ADR-2014-00294

PATIENT
  Sex: Female

DRUGS (6)
  1. BACLOFEN [Suspect]
     Indication: SPINAL PAIN
     Dates: end: 20140227
  2. DILAUDID [Suspect]
  3. DIAZEPAM [Suspect]
  4. PROPANOL [Suspect]
  5. MICROZINE [Suspect]
  6. MECLIZINE [Suspect]

REACTIONS (9)
  - No therapeutic response [None]
  - Implant site pain [None]
  - Device failure [None]
  - Device kink [None]
  - Activities of daily living impaired [None]
  - Haemoptysis [None]
  - Pulmonary congestion [None]
  - Cough [None]
  - Suture related complication [None]
